FAERS Safety Report 23384672 (Version 4)
Quarter: 2025Q1

REPORT INFORMATION
  Report Type: Spontaneous
  Country: US (occurrence: US)
  Receive Date: 20240109
  Receipt Date: 20250225
  Transmission Date: 20250408
  Serious: Yes (Death, Other)
  Sender: PFIZER
  Company Number: US-PFIZER INC-PV202300185412

PATIENT
  Age: 80 Year
  Sex: Male

DRUGS (1)
  1. VYNDAMAX [Suspect]
     Active Substance: TAFAMIDIS
     Indication: Acquired ATTR amyloidosis
     Dosage: 61 MG DAILY
     Dates: start: 2023

REACTIONS (8)
  - Death [Fatal]
  - Dizziness [Unknown]
  - Weight increased [Unknown]
  - Onychoclasis [Unknown]
  - Fatigue [Unknown]
  - Acquired ATTR amyloidosis [Unknown]
  - Disease progression [Unknown]
  - Musculoskeletal disorder [Unknown]

NARRATIVE: CASE EVENT DATE: 20250203
